FAERS Safety Report 23946847 (Version 1)
Quarter: 2024Q2

REPORT INFORMATION
  Report Type: Spontaneous
  Country: US (occurrence: None)
  Receive Date: 20240606
  Receipt Date: 20240606
  Transmission Date: 20240716
  Serious: Yes (Hospitalization)
  Sender: FDA-Public Use
  Company Number: None

PATIENT
  Sex: Female

DRUGS (18)
  1. PREDNISONE [Suspect]
     Active Substance: PREDNISONE
     Indication: Product used for unknown indication
  2. CARVEDILOL [Concomitant]
     Active Substance: CARVEDILOL
  3. AMLODIPINE BESYLATE/ATORV [Concomitant]
  4. LOSARTAN POTASSIUM [Concomitant]
     Active Substance: LOSARTAN POTASSIUM
  5. LAMOTRIGINE [Concomitant]
     Active Substance: LAMOTRIGINE
  6. TRAZODONE HYDROCHLORIDE [Concomitant]
     Active Substance: TRAZODONE HYDROCHLORIDE
  7. ROSUVASTATIN CALCIUM [Concomitant]
     Active Substance: ROSUVASTATIN CALCIUM
  8. GABAPENTIN [Concomitant]
     Active Substance: GABAPENTIN
  9. EPINEPHRINE [Concomitant]
     Active Substance: EPINEPHRINE
  10. OZEMPIC [Concomitant]
     Active Substance: SEMAGLUTIDE
  11. EFFEXOR [Concomitant]
     Active Substance: VENLAFAXINE HYDROCHLORIDE
  12. HUMIRA [Suspect]
     Active Substance: ADALIMUMAB
  13. TALTZ [Suspect]
     Active Substance: IXEKIZUMAB
  14. SKYRIZI [Suspect]
     Active Substance: RISANKIZUMAB-RZAA
  15. ENBREL [Suspect]
     Active Substance: BENZYL ALCOHOL\ETANERCEPT
  16. COSENTYX [Suspect]
     Active Substance: SECUKINUMAB
  17. TREMFYA [Suspect]
     Active Substance: GUSELKUMAB
  18. LEFLUNOMIDE [Suspect]
     Active Substance: LEFLUNOMIDE

REACTIONS (4)
  - Therapy cessation [None]
  - Drug ineffective [None]
  - Movement disorder [None]
  - Anger [None]
